FAERS Safety Report 17426155 (Version 1)
Quarter: 2020Q1

REPORT INFORMATION
  Report Type: Spontaneous
  Country: US (occurrence: US)
  Receive Date: 20200217
  Receipt Date: 20200217
  Transmission Date: 20200409
  Serious: Yes (Other)
  Sender: FDA-Public Use
  Company Number: US-AMGEN-USASP2020024632

PATIENT
  Age: 68 Year
  Sex: Female

DRUGS (1)
  1. PROLIA [Suspect]
     Active Substance: DENOSUMAB
     Indication: OSTEOPOROSIS POSTMENOPAUSAL
     Dosage: UNK
     Route: 065
     Dates: start: 2018

REACTIONS (11)
  - Pain [Unknown]
  - Musculoskeletal stiffness [Unknown]
  - Dyspnoea [Unknown]
  - Dry throat [Unknown]
  - Urticaria [Unknown]
  - Wrong product administered [Unknown]
  - Back pain [Recovered/Resolved]
  - Haemorrhage urinary tract [Unknown]
  - Chills [Recovered/Resolved]
  - Chromaturia [Unknown]
  - Lip swelling [Unknown]

NARRATIVE: CASE EVENT DATE: 2019
